FAERS Safety Report 6241773-5 (Version None)
Quarter: 2009Q2

REPORT INFORMATION
  Report Type: 
  Country: None (occurrence: None)
  Receive Date: 20090623
  Receipt Date: 20090616
  Transmission Date: 20091009
  Serious: Yes (Other)
  Sender: FDA-Public Use
  Company Number: ES-ABBOTT-09P-144-0580264-00

PATIENT
  Age: 42 Year
  Sex: Female
  Weight: 62 kg

DRUGS (3)
  1. HUMIRA [Suspect]
     Indication: CROHN'S DISEASE
     Dosage: INDUCTION DOSE
     Route: 058
     Dates: start: 20080925, end: 20080925
  2. HUMIRA [Suspect]
  3. HUMIRA [Suspect]
     Dates: end: 20090219

REACTIONS (3)
  - ARTHRALGIA [None]
  - POLYARTHRITIS [None]
  - POST PROCEDURAL COMPLICATION [None]
